FAERS Safety Report 23080779 (Version 1)
Quarter: 2023Q4

REPORT INFORMATION
  Report Type: Spontaneous
  Country: US (occurrence: None)
  Receive Date: 20231018
  Receipt Date: 20231018
  Transmission Date: 20240110
  Serious: No
  Sender: FDA-Public Use
  Company Number: None

PATIENT
  Sex: 0

DRUGS (1)
  1. ZAVZPRET [Suspect]
     Active Substance: ZAVEGEPANT HYDROCHLORIDE

REACTIONS (5)
  - Swelling of eyelid [None]
  - Eye pain [None]
  - Drug ineffective [None]
  - Lacrimation increased [None]
  - Eye pain [None]

NARRATIVE: CASE EVENT DATE: 20231018
